FAERS Safety Report 21049321 (Version 1)
Quarter: 2022Q3

REPORT INFORMATION
  Report Type: Report from Study
  Country: US (occurrence: US)
  Receive Date: 20220706
  Receipt Date: 20220706
  Transmission Date: 20221027
  Serious: Yes (Death, Hospitalization)
  Sender: FDA-Public Use
  Company Number: US-ACTELION-A-NJ2015-115250

PATIENT
  Age: 82 Year
  Sex: Female

DRUGS (1)
  1. TRACLEER [Suspect]
     Active Substance: BOSENTAN
     Indication: Pulmonary arterial hypertension
     Dosage: 125 MG, BID
     Route: 048

REACTIONS (6)
  - Death [Fatal]
  - Hospitalisation [Unknown]
  - Renal failure [Unknown]
  - Dialysis [Unknown]
  - Urinary tract infection [Unknown]
  - Hypoacusis [Unknown]

NARRATIVE: CASE EVENT DATE: 20150201
